FAERS Safety Report 9319998 (Version 3)
Quarter: 2013Q2

REPORT INFORMATION
  Report Type: Spontaneous
  Country: AU (occurrence: AU)
  Receive Date: 20130530
  Receipt Date: 20130617
  Transmission Date: 20140414
  Serious: Yes (Hospitalization)
  Sender: FDA-Public Use
  Company Number: AU-ABBOTT-13P-008-1095729-00

PATIENT
  Sex: Male

DRUGS (2)
  1. HUMIRA [Suspect]
     Indication: CROHN^S DISEASE
     Dates: start: 2010
  2. IMURAN [Concomitant]
     Indication: PRODUCT USED FOR UNKNOWN INDICATION

REACTIONS (9)
  - Condition aggravated [Unknown]
  - Condition aggravated [Unknown]
  - Iron deficiency anaemia [Unknown]
  - Faecal calprotectin increased [Unknown]
  - Post procedural haemorrhage [Unknown]
  - Device difficult to use [Unknown]
  - Drug dose omission [Unknown]
  - Treatment noncompliance [Unknown]
  - Drug prescribing error [Unknown]
